FAERS Safety Report 10206677 (Version 2)
Quarter: 2014Q3

REPORT INFORMATION
  Report Type: Spontaneous
  Country: BR (occurrence: BR)
  Receive Date: 20140530
  Receipt Date: 20140707
  Transmission Date: 20150326
  Serious: Yes (Death, Other)
  Sender: FDA-Public Use
  Company Number: BR-PFIZER INC-2014145687

PATIENT
  Age: 52 Year
  Sex: Male

DRUGS (1)
  1. SUTENT [Suspect]
     Active Substance: SUNITINIB MALATE
     Indication: GASTROINTESTINAL STROMAL CANCER
     Dosage: 50 MG, CYCLE 4X2
     Route: 048
     Dates: start: 20131204

REACTIONS (2)
  - IIIrd nerve paralysis [Unknown]
  - Death [Fatal]

NARRATIVE: CASE EVENT DATE: 20140613
